FAERS Safety Report 13492099 (Version 3)
Quarter: 2020Q4

REPORT INFORMATION
  Report Type: Spontaneous
  Country: US (occurrence: US)
  Receive Date: 20170427
  Receipt Date: 20201013
  Transmission Date: 20210113
  Serious: No
  Sender: FDA-Public Use
  Company Number: US-009507513-1704USA006517

PATIENT
  Sex: Female

DRUGS (2)
  1. INTRON A [Suspect]
     Active Substance: INTERFERON ALFA-2B
     Indication: MALIGNANT MELANOMA
     Dosage: STRENGTH: 18 MILION IU/ 3 ML, DOSE: 750 000 UNITS (0.04 ML)(12.5 UNITS IN SYRINGE), DAILY (QD)
     Route: 058
     Dates: start: 20170419
  2. INTRON A [Suspect]
     Active Substance: INTERFERON ALFA-2B

REACTIONS (5)
  - Adverse event [Not Recovered/Not Resolved]
  - Adverse event [Unknown]
  - Product dose omission issue [Unknown]
  - Hair disorder [Unknown]
  - Nausea [Unknown]

NARRATIVE: CASE EVENT DATE: 2017
